FAERS Safety Report 7178002-4 (Version None)
Quarter: 2010Q4

REPORT INFORMATION
  Report Type: 
  Country: None (occurrence: None)
  Receive Date: 20101220
  Receipt Date: 20101208
  Transmission Date: 20110411
  Serious: Yes (Hospitalization)
  Sender: FDA-Public Use
  Company Number: AU-ACTELION-A-CH2010-42432

PATIENT
  Sex: Female
  Weight: 58.4 kg

DRUGS (9)
  1. BOSENTAN TABLET 62.5 MG ROW [Suspect]
     Indication: PULMONARY ARTERIAL HYPERTENSION
     Dosage: 62.5 MG, BID
     Route: 048
     Dates: start: 20100912, end: 20100927
  2. FUROSEMIDE [Concomitant]
  3. GLICLAZIDE [Concomitant]
  4. MAGMIN [Concomitant]
  5. PANTOPRAZOLE [Concomitant]
  6. PARACETAMOL [Concomitant]
  7. PROPRANOLOL [Concomitant]
  8. SILDENAFIL [Concomitant]
  9. SPIRONOLACTONE [Concomitant]

REACTIONS (13)
  - BLOOD ALKALINE PHOSPHATASE INCREASED [None]
  - CREPITATIONS [None]
  - EPISTAXIS [None]
  - ESCHERICHIA TEST POSITIVE [None]
  - HEADACHE [None]
  - LETHARGY [None]
  - OXYGEN SATURATION DECREASED [None]
  - PCO2 INCREASED [None]
  - PNEUMONIA [None]
  - PO2 DECREASED [None]
  - RESPIRATORY FAILURE [None]
  - SOMNOLENCE [None]
  - URINARY TRACT INFECTION [None]
